FAERS Safety Report 6656105-8 (Version None)
Quarter: 2010Q1

REPORT INFORMATION
  Report Type: 
  Country: None (occurrence: None)
  Receive Date: 20100329
  Receipt Date: 20100319
  Transmission Date: 20100710
  Serious: Yes (Other)
  Sender: FDA-Public Use
  Company Number: B0641819A

PATIENT
  Sex: Male

DRUGS (1)
  1. DEROXAT [Suspect]
     Indication: DRUG USE FOR UNKNOWN INDICATION
     Route: 048

REACTIONS (3)
  - RETINAL DETACHMENT [None]
  - RETINAL TEAR [None]
  - VISION BLURRED [None]
